FAERS Safety Report 15690873 (Version 2)
Quarter: 2019Q1

REPORT INFORMATION
  Report Type: Report from Study
  Country: GB (occurrence: GB)
  Receive Date: 20181205
  Receipt Date: 20190227
  Transmission Date: 20190417
  Serious: Yes (Hospitalization, Other)
  Sender: FDA-Public Use
  Company Number: GB-SHIRE-GB201845743

PATIENT

DRUGS (2)
  1. CINRYZE [Suspect]
     Active Substance: HUMAN C1-ESTERASE INHIBITOR
     Indication: HEREDITARY ANGIOEDEMA
     Dosage: 1000 IU, AS REQ^D
     Route: 042
     Dates: start: 20140623
  2. SELEXID [Concomitant]
     Indication: PROPHYLAXIS

REACTIONS (4)
  - Dehydration [Unknown]
  - Hereditary angioedema [Unknown]
  - Nausea [Unknown]
  - Acute kidney injury [Unknown]
